FAERS Safety Report 5060246-9 (Version None)
Quarter: 2006Q3

REPORT INFORMATION
  Report Type: 
  Country: None (occurrence: None)
  Receive Date: 20060720
  Receipt Date: 20060711
  Transmission Date: 20061208
  Serious: Yes (Hospitalization, Other)
  Sender: FDA-Public Use
  Company Number: 2006-06-0633

PATIENT
  Age: 71 Year
  Sex: Female

DRUGS (7)
  1. PEG-INTRON [Suspect]
     Indication: HEPATITIS C
     Dosage: 80 UG QWK SUBCUTANEOUS
     Route: 058
     Dates: start: 20050628, end: 20050930
  2. REBETOL [Suspect]
     Indication: HEPATITIS C
     Dosage: 800 MG  QD ORAL
     Route: 048
     Dates: start: 20050628, end: 20050930
  3. CARVEDILOL [Concomitant]
  4. PREMARIN [Concomitant]
  5. UTROGESTAN (MICRONIZED ORAL PROGESTERONE) [Concomitant]
  6. ACTONEL [Concomitant]
  7. CALCIUM CARBONATE [Concomitant]

REACTIONS (5)
  - BRONCHITIS [None]
  - DIABETES MELLITUS INADEQUATE CONTROL [None]
  - IATROGENIC INJURY [None]
  - INTERSTITIAL LUNG DISEASE [None]
  - LUNG INFECTION [None]
